FAERS Safety Report 11924375 (Version 2)
Quarter: 2016Q1

REPORT INFORMATION
  Report Type: Spontaneous
  Country: US (occurrence: US)
  Receive Date: 20160118
  Receipt Date: 20160201
  Transmission Date: 20160526
  Serious: Yes (Hospitalization)
  Sender: FDA-Public Use
  Company Number: US-BIOGEN-2016BI00172418

PATIENT
  Age: 74 Year
  Sex: Female

DRUGS (2)
  1. AVONEX [Suspect]
     Active Substance: INTERFERON BETA-1A
     Route: 030
  2. AVONEX [Suspect]
     Active Substance: INTERFERON BETA-1A
     Indication: MULTIPLE SCLEROSIS
     Route: 030

REACTIONS (13)
  - Multiple sclerosis relapse [Not Recovered/Not Resolved]
  - Dizziness [Unknown]
  - Abasia [Recovered/Resolved]
  - Urinary retention [Not Recovered/Not Resolved]
  - Musculoskeletal disorder [Unknown]
  - Urinary incontinence [Not Recovered/Not Resolved]
  - Nausea [Unknown]
  - Blood pressure fluctuation [Recovered/Resolved]
  - Hypertension [Unknown]
  - Dysarthria [Unknown]
  - Coordination abnormal [Unknown]
  - Vomiting [Unknown]
  - Vision blurred [Not Recovered/Not Resolved]

NARRATIVE: CASE EVENT DATE: 201503
